FAERS Safety Report 22057729 (Version 1)
Quarter: 2023Q1

REPORT INFORMATION
  Report Type: Spontaneous
  Country: US (occurrence: US)
  Receive Date: 20230303
  Receipt Date: 20230303
  Transmission Date: 20230418
  Serious: No
  Sender: FDA-Public Use
  Company Number: US-LEO Pharma-349684

PATIENT
  Sex: Male

DRUGS (9)
  1. AMLODIPINE BESYLATE [Concomitant]
     Active Substance: AMLODIPINE BESYLATE
     Indication: Product used for unknown indication
  2. ADBRY [Suspect]
     Active Substance: TRALOKINUMAB-LDRM
     Indication: Dermatitis atopic
     Dosage: DOSAGE : 4 INJECTIONS FOR THE INITIAL DOSE THEN AT 2 INJECTIONS EVERY OTHER WEEK SUBCUTANEOUSLY
     Route: 058
     Dates: start: 202209
  3. ADBRY [Suspect]
     Active Substance: TRALOKINUMAB-LDRM
     Indication: Dermatitis atopic
     Dosage: DOSAGE : 4 INJECTIONS FOR THE INITIAL DOSE THEN AT 2 INJECTIONS EVERY OTHER WEEK SUBCUTANEOUSLY
     Route: 058
     Dates: start: 202209
  4. ADBRY [Suspect]
     Active Substance: TRALOKINUMAB-LDRM
     Indication: Dermatitis atopic
     Dosage: DOSAGE : 4 INJECTIONS FOR THE INITIAL DOSE THEN AT 2 INJECTIONS EVERY OTHER WEEK SUBCUTANEOUSLY
     Route: 058
     Dates: start: 202209
  5. ADBRY [Suspect]
     Active Substance: TRALOKINUMAB-LDRM
     Indication: Dermatitis atopic
     Dosage: DOSAGE : 4 INJECTIONS FOR THE INITIAL DOSE THEN AT 2 INJECTIONS EVERY OTHER WEEK SUBCUTANEOUSLY
     Route: 058
     Dates: start: 202209
  6. ADBRY [Suspect]
     Active Substance: TRALOKINUMAB-LDRM
     Indication: Dermatitis atopic
     Dosage: DOSAGE : 4 INJECTIONS FOR THE INITIAL DOSE THEN AT 2 INJECTIONS EVERY OTHER WEEK SUBCUTANEOUSLY
     Route: 058
  7. ADBRY [Suspect]
     Active Substance: TRALOKINUMAB-LDRM
     Indication: Dermatitis atopic
     Dosage: DOSAGE : 4 INJECTIONS FOR THE INITIAL DOSE THEN AT 2 INJECTIONS EVERY OTHER WEEK SUBCUTANEOUSLY
     Route: 058
  8. ADBRY [Suspect]
     Active Substance: TRALOKINUMAB-LDRM
     Indication: Dermatitis atopic
     Dosage: DOSAGE : 4 INJECTIONS FOR THE INITIAL DOSE THEN AT 2 INJECTIONS EVERY OTHER WEEK SUBCUTANEOUSLY
     Route: 058
  9. ADBRY [Suspect]
     Active Substance: TRALOKINUMAB-LDRM
     Indication: Dermatitis atopic
     Dosage: DOSAGE : 4 INJECTIONS FOR THE INITIAL DOSE THEN AT 2 INJECTIONS EVERY OTHER WEEK SUBCUTANEOUSLY
     Route: 058

REACTIONS (2)
  - Drug ineffective [Unknown]
  - Rash [Unknown]
